FAERS Safety Report 6468178-6 (Version None)
Quarter: 2009Q4

REPORT INFORMATION
  Report Type: 
  Country: None (occurrence: None)
  Receive Date: 20091202
  Receipt Date: 20091123
  Transmission Date: 20100525
  Serious: Yes (Disabling)
  Sender: FDA-Public Use
  Company Number: DE-GENENTECH-295038

PATIENT
  Age: 66 Year
  Sex: Female

DRUGS (13)
  1. RITUXIMAB [Suspect]
     Indication: RHEUMATOID ARTHRITIS
     Dosage: UNK
     Route: 065
     Dates: start: 20081106
  2. METHOTREXATE [Suspect]
     Indication: RHEUMATOID ARTHRITIS
     Dosage: 7.5 MG, 1/WEEK
     Route: 051
     Dates: start: 20081101
  3. AMLODIPINE [Concomitant]
     Indication: DRUG USE FOR UNKNOWN INDICATION
     Dosage: UNK
  4. TORSEMIDE [Concomitant]
     Indication: DRUG USE FOR UNKNOWN INDICATION
     Dosage: UNK
  5. ASPIRIN [Concomitant]
     Indication: DRUG USE FOR UNKNOWN INDICATION
     Dosage: UNK
  6. SIMVASTATIN [Concomitant]
     Indication: DRUG USE FOR UNKNOWN INDICATION
     Dosage: UNK
  7. GLIMEPIRIDE [Concomitant]
     Indication: DRUG USE FOR UNKNOWN INDICATION
     Dosage: UNK
  8. PANTOZOL [Concomitant]
     Indication: DRUG USE FOR UNKNOWN INDICATION
     Dosage: UNK
  9. PREDNISOLONE [Concomitant]
     Indication: DRUG USE FOR UNKNOWN INDICATION
  10. CALCIMAGON-D3 [Concomitant]
     Indication: DRUG USE FOR UNKNOWN INDICATION
  11. IBUPROFEN [Concomitant]
     Indication: DRUG USE FOR UNKNOWN INDICATION
  12. ENALAPRIL MALEATE [Concomitant]
     Indication: DRUG USE FOR UNKNOWN INDICATION
  13. BISOPROLOL [Concomitant]
     Indication: DRUG USE FOR UNKNOWN INDICATION

REACTIONS (1)
  - SKIN ULCER [None]
